FAERS Safety Report 11804957 (Version 1)
Quarter: 2015Q4

REPORT INFORMATION
  Report Type: Spontaneous
  Country: GB (occurrence: GB)
  Receive Date: 20151205
  Receipt Date: 20151205
  Transmission Date: 20160305
  Serious: Yes (Disabling)
  Sender: FDA-Public Use
  Company Number: GB-TEVA-613273ACC

PATIENT
  Age: 46 Year
  Sex: Female
  Weight: 114.3 kg

DRUGS (3)
  1. DULOXETINE. [Suspect]
     Active Substance: DULOXETINE
     Dosage: 60 MILLIGRAM DAILY; 40 MG DAILY FOR 14 DAYS RISING TO 60MG DAILY.
     Route: 048
     Dates: start: 20150915, end: 20151031
  2. DULOXETINE. [Suspect]
     Active Substance: DULOXETINE
     Indication: FIBROMYALGIA
     Dosage: 40 MILLIGRAM DAILY; 40 MG DAILY FOR 14 DAYS RISING TO 60MG DAILY.
     Route: 048
     Dates: start: 20150915, end: 20151031
  3. PARACETAMOL [Concomitant]
     Active Substance: ACETAMINOPHEN

REACTIONS (10)
  - Dizziness [Recovering/Resolving]
  - Nausea [Recovered/Resolved]
  - Irritable bowel syndrome [Recovering/Resolving]
  - Tearfulness [Recovering/Resolving]
  - Feeling abnormal [Recovering/Resolving]
  - Feeling hot [Recovered/Resolved with Sequelae]
  - Hyperhidrosis [Recovered/Resolved]
  - Drug withdrawal syndrome [Recovering/Resolving]
  - Nightmare [Recovering/Resolving]
  - Somnolence [Recovering/Resolving]

NARRATIVE: CASE EVENT DATE: 20150916
